FAERS Safety Report 19811331 (Version 1)
Quarter: 2021Q3

REPORT INFORMATION
  Report Type: Spontaneous
  Country: PL (occurrence: PL)
  Receive Date: 20210909
  Receipt Date: 20210909
  Transmission Date: 20211014
  Serious: Yes (Hospitalization)
  Sender: FDA-Public Use
  Company Number: NVSC2021PL200869

PATIENT
  Age: 55 Year
  Sex: Male
  Weight: 80 kg

DRUGS (1)
  1. CARBAMAZEPINE. [Suspect]
     Active Substance: CARBAMAZEPINE
     Indication: SUICIDE ATTEMPT
     Dosage: UNK
     Route: 048
     Dates: start: 20201218, end: 20201218

REACTIONS (4)
  - Dysarthria [Unknown]
  - Suicide attempt [Unknown]
  - Nystagmus [Unknown]
  - Confusional state [Unknown]

NARRATIVE: CASE EVENT DATE: 20201219
